FAERS Safety Report 23367359 (Version 6)
Quarter: 2024Q1

REPORT INFORMATION
  Report Type: Spontaneous
  Country: US (occurrence: US)
  Receive Date: 20240104
  Receipt Date: 20240301
  Transmission Date: 20240410
  Serious: Yes (Disabling)
  Sender: FDA-Public Use
  Company Number: US-PFIZER INC-2019447884

PATIENT
  Age: 84 Year
  Sex: Female
  Weight: 60.771 kg

DRUGS (1)
  1. PREMPRO [Suspect]
     Active Substance: ESTROGENS, CONJUGATED\MEDROXYPROGESTERONE ACETATE
     Dosage: UNK, 1X/DAY

REACTIONS (3)
  - Arthritis [Unknown]
  - Hand deformity [Unknown]
  - Loss of personal independence in daily activities [Unknown]
